FAERS Safety Report 11310352 (Version 4)
Quarter: 2015Q4

REPORT INFORMATION
  Report Type: Spontaneous
  Country: US (occurrence: US)
  Receive Date: 20150724
  Receipt Date: 20151104
  Transmission Date: 20160304
  Serious: Yes (Hospitalization, Other)
  Sender: FDA-Public Use
  Company Number: US-PFIZER INC-2015243607

PATIENT
  Age: 85 Year
  Sex: Female

DRUGS (8)
  1. CALCIUM [Concomitant]
     Active Substance: CALCIUM
     Dosage: 600 MG, 3X/DAY
  2. METOPROLOL TARTRATE. [Concomitant]
     Active Substance: METOPROLOL TARTRATE
     Dosage: 2X/DAY (1/2 TWICE DAILY 25MG)
  3. XARELTO [Concomitant]
     Active Substance: RIVAROXABAN
     Dosage: 20 MG, DAILY
     Dates: start: 20150613
  4. CHLORTHALIDON [Concomitant]
     Dosage: 25 MG, DAILY
  5. PREMARIN [Suspect]
     Active Substance: ESTROGENS, CONJUGATED
     Dosage: 0.5 MG, 2X/WEEK
     Dates: start: 20141124
  6. KLOR-CON [Concomitant]
     Active Substance: POTASSIUM CHLORIDE
     Dosage: 10 MEQ, 2X/DAY
  7. AMIODARONE [Concomitant]
     Active Substance: AMIODARONE
     Dosage: 200 MG, DAILY
  8. VITAMIN D3 [Concomitant]
     Active Substance: CHOLECALCIFEROL
     Dosage: 800 IU, 3X/DAY

REACTIONS (3)
  - Cardiac disorder [Unknown]
  - Atrial fibrillation [Unknown]
  - Intentional product misuse [Unknown]
